FAERS Safety Report 5311885-9 (Version None)
Quarter: 2007Q2

REPORT INFORMATION
  Report Type: 
  Country: None (occurrence: None)
  Receive Date: 20070427
  Receipt Date: 20070427
  Transmission Date: 20071010
  Serious: Yes (Other)
  Sender: FDA-Public Use
  Company Number: None

PATIENT
  Age: 63 Year
  Sex: Female
  Weight: 54.4316 kg

DRUGS (1)
  1. CYMBALTA [Suspect]
     Indication: DEPRESSION
     Dosage: 1 CAP  DAILY  PO
     Route: 048
     Dates: start: 20030301, end: 20031021

REACTIONS (9)
  - GASTROINTESTINAL DISORDER [None]
  - GINGIVAL DISORDER [None]
  - MUCOUS MEMBRANE DISORDER [None]
  - NASAL DISORDER [None]
  - NEURALGIA [None]
  - OESOPHAGEAL DISORDER [None]
  - ORAL SOFT TISSUE DISORDER [None]
  - SINUS DISORDER [None]
  - TONGUE DISORDER [None]
